FAERS Safety Report 23195132 (Version 2)
Quarter: 2024Q1

REPORT INFORMATION
  Report Type: Report from Study
  Country: US (occurrence: US)
  Receive Date: 20231117
  Receipt Date: 20240119
  Transmission Date: 20240409
  Serious: No
  Sender: FDA-Public Use
  Company Number: US-002147023-NVSC2023US244584

PATIENT
  Sex: Male

DRUGS (1)
  1. ENTRESTO [Suspect]
     Active Substance: SACUBITRIL\VALSARTAN
     Indication: Product used for unknown indication
     Dosage: UNK (24/26 MG), BID
     Route: 048
     Dates: start: 20230901

REACTIONS (4)
  - Weight fluctuation [Unknown]
  - Fatigue [Unknown]
  - Drug ineffective [Unknown]
  - Cough [Unknown]
